FAERS Safety Report 6235948-9 (Version None)
Quarter: 2009Q2

REPORT INFORMATION
  Report Type: 
  Country: None (occurrence: None)
  Receive Date: 20090619
  Receipt Date: 20090608
  Transmission Date: 20091009
  Serious: Yes (Hospitalization, Other)
  Sender: FDA-Public Use
  Company Number: PHHY2009FR23171

PATIENT
  Sex: Female

DRUGS (5)
  1. STALEVO 100 [Suspect]
     Indication: PARKINSON'S DISEASE
     Dosage: 4 DF, QD
     Route: 048
     Dates: start: 20081210, end: 20090423
  2. MADOPAR [Suspect]
     Indication: PARKINSON'S DISEASE
     Dosage: 125 MG, QD
  3. LAMALINE [Suspect]
     Dosage: UNK
     Route: 054
     Dates: start: 20090301
  4. TRAMADOL HCL [Suspect]
     Dosage: UNK
     Dates: start: 20090408, end: 20090413
  5. ACUPAN [Suspect]
     Dosage: 1 DF, QD
     Route: 048
     Dates: start: 20090419, end: 20090420

REACTIONS (3)
  - CONFUSIONAL STATE [None]
  - DELIRIUM [None]
  - HALLUCINATION, VISUAL [None]
